FAERS Safety Report 19804436 (Version 1)
Quarter: 2021Q3

REPORT INFORMATION
  Report Type: Spontaneous
  Country: US (occurrence: US)
  Receive Date: 20210908
  Receipt Date: 20210908
  Transmission Date: 20211014
  Serious: No
  Sender: FDA-Public Use
  Company Number: US-FARMAPROD-202106-0920

PATIENT
  Age: 78 Year
  Sex: Female

DRUGS (14)
  1. B12 ACTIVE [Concomitant]
  2. CRANBERRY. [Concomitant]
     Active Substance: CRANBERRY
  3. VITAMIN C [Concomitant]
     Active Substance: ASCORBIC ACID
  4. VITAMIN E [Concomitant]
     Active Substance: .ALPHA.-TOCOPHEROL
  5. TURMERIC [Concomitant]
     Active Substance: HERBALS\TURMERIC
  6. REFRESH DIGITAL [Concomitant]
     Active Substance: CARBOXYMETHYLCELLULOSE SODIUM\GLYCERIN\POLYSORBATE 80
     Dosage: 0.5?1?0.5%
  7. MULTIVITAMIN [Concomitant]
     Active Substance: VITAMINS
  8. OMEGA 3?6?9 [Concomitant]
     Active Substance: FISH OIL
  9. OXERVATE [Suspect]
     Active Substance: CENEGERMIN-BKBJ
     Indication: NEUROTROPHIC KERATOPATHY
     Route: 047
     Dates: start: 20210607
  10. COENZYME Q10 [Concomitant]
     Active Substance: DIETARY SUPPLEMENT\UBIDECARENONE
  11. SIMVASTATIN. [Concomitant]
     Active Substance: SIMVASTATIN
  12. METOPROLOL SUCCINATE. [Concomitant]
     Active Substance: METOPROLOL SUCCINATE
  13. VITAMIN D2 [Concomitant]
     Active Substance: ERGOCALCIFEROL
  14. PREMARIN [Concomitant]
     Active Substance: ESTROGENS, CONJUGATED
     Dosage: WITH APPLICATOR

REACTIONS (3)
  - Photophobia [Recovering/Resolving]
  - Wrong technique in product usage process [Unknown]
  - Eyelid pain [Recovering/Resolving]

NARRATIVE: CASE EVENT DATE: 202106
